FAERS Safety Report 10724653 (Version 1)
Quarter: 2015Q1

REPORT INFORMATION
  Report Type: Report from Study
  Country: US (occurrence: US)
  Receive Date: 20150120
  Receipt Date: 20150120
  Transmission Date: 20150721
  Serious: Yes (Death, Hospitalization)
  Sender: FDA-Public Use
  Company Number: US-JNJFOC-20141113282

PATIENT
  Age: 87 Year
  Sex: Male

DRUGS (9)
  1. PILOCARPINE [Concomitant]
     Active Substance: PILOCARPINE
     Route: 047
     Dates: start: 20140319
  2. ZYTIGA [Suspect]
     Active Substance: ABIRATERONE ACETATE
     Indication: PROSTATE CANCER
     Route: 048
     Dates: start: 20131214, end: 20140310
  3. ASPIRIN BABY [Concomitant]
     Indication: THROMBOSIS
     Route: 065
     Dates: start: 20140319
  4. CALCIUM [Concomitant]
     Active Substance: CALCIUM
     Route: 065
     Dates: start: 20140319
  5. COMBIGAN [Concomitant]
     Active Substance: BRIMONIDINE TARTRATE\TIMOLOL MALEATE
     Indication: GLAUCOMA
     Route: 047
     Dates: start: 20140319
  6. TRAVATAN [Concomitant]
     Active Substance: TRAVOPROST
     Route: 047
     Dates: start: 20140319
  7. WARFARIN [Concomitant]
     Active Substance: WARFARIN
     Indication: THROMBOSIS
     Route: 065
     Dates: start: 20140319
  8. PREDNISONE. [Concomitant]
     Active Substance: PREDNISONE
     Indication: NEOPLASM MALIGNANT
     Route: 065
     Dates: start: 20140319
  9. AZOPT [Concomitant]
     Active Substance: BRINZOLAMIDE
     Route: 047
     Dates: start: 20140319

REACTIONS (2)
  - Adverse drug reaction [Not Recovered/Not Resolved]
  - Pulmonary oedema [Fatal]

NARRATIVE: CASE EVENT DATE: 20131214
